FAERS Safety Report 25255785 (Version 1)
Quarter: 2025Q2

REPORT INFORMATION
  Report Type: Spontaneous
  Country: US (occurrence: None)
  Receive Date: 20250429
  Receipt Date: 20250429
  Transmission Date: 20250717
  Serious: Yes (Other)
  Sender: FDA-CTU
  Company Number: None

PATIENT
  Age: 44 Year
  Sex: Male
  Weight: 76 kg

DRUGS (2)
  1. NIVOLUMAB [Suspect]
     Active Substance: NIVOLUMAB
     Indication: Adenocarcinoma gastric
     Route: 042
  2. NIVOLUMAB [Suspect]
     Active Substance: NIVOLUMAB
     Indication: Hereditary non-polyposis colorectal cancer syndrome

REACTIONS (7)
  - Infusion related reaction [None]
  - Flushing [None]
  - Chills [None]
  - Hypoxia [None]
  - Muscle spasms [None]
  - Pallor [None]
  - Dyspnoea [None]

NARRATIVE: CASE EVENT DATE: 20250409
